FAERS Safety Report 16479091 (Version 1)
Quarter: 2019Q2

REPORT INFORMATION
  Report Type: Spontaneous
  Country: US (occurrence: US)
  Receive Date: 20190626
  Receipt Date: 20190626
  Transmission Date: 20190711
  Serious: Yes (Hospitalization, Other)
  Sender: FDA-Public Use
  Company Number: US-SAOL THERAPEUTICS-2018SAO00953

PATIENT
  Age: 60 Year
  Sex: Female
  Weight: 80 kg

DRUGS (3)
  1. UNSPECIFIED ANETHESIA [Suspect]
     Active Substance: UNSPECIFIED INGREDIENT
  2. LIORESAL [Suspect]
     Active Substance: BACLOFEN
     Indication: MUSCLE SPASTICITY
     Dosage: 1447 ?G, \DAY
     Route: 037
  3. LIORESAL [Suspect]
     Active Substance: BACLOFEN
     Dosage: 1447.9 UNK

REACTIONS (3)
  - Seizure [Not Recovered/Not Resolved]
  - Malaise [Unknown]
  - Confusional state [Not Recovered/Not Resolved]

NARRATIVE: CASE EVENT DATE: 20180815
